FAERS Safety Report 6096140-4 (Version None)
Quarter: 2009Q1

REPORT INFORMATION
  Report Type: 
  Country: None (occurrence: None)
  Receive Date: 20090227
  Receipt Date: 20080912
  Transmission Date: 20090719
  Serious: No
  Sender: FDA-Public Use
  Company Number: A0747292A

PATIENT
  Age: 54 Year
  Sex: Female

DRUGS (6)
  1. LAMICTAL [Suspect]
     Indication: BIPOLAR DISORDER
     Dosage: 25MG PER DAY
     Route: 048
     Dates: start: 20070603, end: 20070716
  2. LORAZEPAM [Concomitant]
     Indication: BIPOLAR DISORDER
  3. TRILEPTAL [Concomitant]
     Indication: BIPOLAR DISORDER
  4. NEURONTIN [Concomitant]
     Indication: BIPOLAR DISORDER
  5. ESKALITH [Concomitant]
     Indication: BIPOLAR DISORDER
  6. CITALOPRAM HYDROBROMIDE [Concomitant]
     Indication: BIPOLAR DISORDER

REACTIONS (3)
  - PAIN [None]
  - SCAR [None]
  - TONGUE DISORDER [None]
